FAERS Safety Report 17673544 (Version 6)
Quarter: 2021Q3

REPORT INFORMATION
  Report Type: Report from Study
  Country: None (occurrence: BE)
  Receive Date: 20200415
  Receipt Date: 20210723
  Transmission Date: 20211014
  Serious: Yes (Life-Threatening, Hospitalization)
  Sender: FDA-Public Use
  Company Number: BE-ABBVIE-20P-013-3357433-00

PATIENT
  Age: 71 Year
  Sex: Female

DRUGS (28)
  1. VENETOCLAX. [Suspect]
     Active Substance: VENETOCLAX
     Route: 048
     Dates: start: 20180412, end: 20200329
  2. ALLOPURINOL. [Concomitant]
     Active Substance: ALLOPURINOL
     Route: 048
     Dates: start: 20180509, end: 20180618
  3. FOLAVIT [Concomitant]
     Active Substance: FOLIC ACID
     Indication: FOLATE DEFICIENCY
     Route: 048
     Dates: start: 201803
  4. IMODIUM [Concomitant]
     Active Substance: LOPERAMIDE HYDROCHLORIDE
     Indication: DIARRHOEA
     Route: 048
     Dates: start: 20180330
  5. VENETOCLAX. [Suspect]
     Active Substance: VENETOCLAX
     Indication: ACUTE MYELOID LEUKAEMIA
     Route: 048
     Dates: start: 20180410, end: 20180410
  6. ALLOPURINOL. [Concomitant]
     Active Substance: ALLOPURINOL
     Indication: BLOOD URIC ACID INCREASED
     Route: 048
     Dates: start: 20180406, end: 20180508
  7. ALLOPURINOL. [Concomitant]
     Active Substance: ALLOPURINOL
     Indication: PROPHYLAXIS
     Route: 048
     Dates: start: 20180718, end: 20180807
  8. MOVICOL [Concomitant]
     Active Substance: POLYETHYLENE GLYCOL 3350\POTASSIUM CHLORIDE\SODIUM BICARBONATE\SODIUM CHLORIDE
     Indication: CONSTIPATION
     Route: 048
     Dates: start: 20180327
  9. BEFACT FORTE [Concomitant]
     Indication: VITAMIN SUPPLEMENTATION
     Dosage: COMPRIME
     Route: 048
     Dates: start: 20180611
  10. CALCI?BONE D3 [Concomitant]
     Indication: HYPOCALCAEMIA
     Dosage: 1000/880
     Route: 048
     Dates: start: 20181011
  11. AZACITIDINE. [Suspect]
     Active Substance: AZACITIDINE
     Indication: ACUTE MYELOID LEUKAEMIA
     Dosage: DAYS 1?7 OF EACH 28 DAY CYCLE
     Route: 058
     Dates: start: 20180410, end: 20180923
  12. ZOFRAN [Concomitant]
     Active Substance: ONDANSETRON HYDROCHLORIDE
     Indication: PROPHYLAXIS OF NAUSEA AND VOMITING
     Route: 048
     Dates: start: 20180410
  13. ACICLOVIR [Concomitant]
     Active Substance: ACYCLOVIR
     Route: 048
     Dates: start: 20180505
  14. AMLODIPINE [Concomitant]
     Active Substance: AMLODIPINE BESYLATE
     Route: 048
     Dates: start: 20181014
  15. DECUSORB PASTE [Concomitant]
     Indication: SKIN ULCER
     Dosage: APPLICATION
     Route: 061
     Dates: start: 20190502
  16. AMLODIPINE [Concomitant]
     Active Substance: AMLODIPINE BESYLATE
     Indication: HYPERTENSION
     Route: 048
     Dates: start: 20180403, end: 20181010
  17. VENETOCLAX. [Suspect]
     Active Substance: VENETOCLAX
     Route: 048
     Dates: start: 20180411, end: 20180411
  18. NORMAL SALINE SOLUTION (0.9% SODIUM CHLORIDE) [Concomitant]
     Indication: PROPHYLAXIS
     Route: 042
     Dates: start: 20180410, end: 20180420
  19. ALUMINUM MAGNESIUM HYDROXIDE [Concomitant]
     Indication: NAUSEA
     Dosage: 200/400
     Route: 048
     Dates: start: 20200210
  20. AZACITIDINE. [Suspect]
     Active Substance: AZACITIDINE
     Dosage: DAYS 1?7 OF EACH 28 DAY CYCLE
     Route: 058
     Dates: start: 20181105, end: 20200315
  21. LISINOPRIL. [Concomitant]
     Active Substance: LISINOPRIL
     Indication: HYPERTENSION
     Route: 048
     Dates: start: 20181016, end: 20200407
  22. ULTRA?MAGNESIUM [Concomitant]
     Indication: MUSCLE SPASMS
     Route: 048
     Dates: start: 20180917
  23. POTASSIUM PERMANGANATE [Concomitant]
     Active Substance: POTASSIUM PERMANGANATE
     Indication: SKIN ULCER
     Dosage: APPLICATION
     Route: 061
     Dates: start: 20190802, end: 20200407
  24. ALLOPURINOL. [Concomitant]
     Active Substance: ALLOPURINOL
     Route: 048
     Dates: start: 20180808, end: 20181019
  25. ALLOPURINOL. [Concomitant]
     Active Substance: ALLOPURINOL
     Route: 048
     Dates: start: 20190924, end: 20200408
  26. TRADONAL ODIS [Concomitant]
     Indication: SKIN ULCER
     Route: 048
     Dates: start: 20180423
  27. ACICLOVIR [Concomitant]
     Active Substance: ACYCLOVIR
     Indication: ANTIVIRAL PROPHYLAXIS
     Route: 048
     Dates: start: 20180413, end: 20180504
  28. DIPROSONE CREAM [Concomitant]
     Indication: SKIN ULCER
     Dosage: APPLICATION
     Route: 061
     Dates: start: 20190110

REACTIONS (1)
  - Pneumonia [Recovered/Resolved]

NARRATIVE: CASE EVENT DATE: 20200408
